FAERS Safety Report 23555889 (Version 2)
Quarter: 2024Q1

REPORT INFORMATION
  Report Type: Spontaneous
  Country: JP (occurrence: JP)
  Receive Date: 20240222
  Receipt Date: 20240305
  Transmission Date: 20240410
  Serious: Yes (Hospitalization)
  Sender: FDA-Public Use
  Company Number: JP-DAIICHI SANKYO, INC.-DSJ-2024-107078

PATIENT
  Sex: Female

DRUGS (5)
  1. ADALIMUMAB [Suspect]
     Active Substance: ADALIMUMAB\ISOPROPYL ALCOHOL
     Indication: Crohn^s disease
     Dosage: 80 MG, ONCE EVERY 2 WK
     Route: 064
  2. AZATHIOPRINE [Concomitant]
     Active Substance: AZATHIOPRINE
     Indication: Crohn^s disease
     Dosage: UNK
     Route: 064
  3. FOLIC ACID [Concomitant]
     Active Substance: FOLIC ACID
     Indication: Product used for unknown indication
     Dosage: UNK
     Route: 064
  4. AMPICILLIN [Concomitant]
     Active Substance: AMPICILLIN
     Indication: Beta haemolytic streptococcal infection
     Dosage: UNK
     Route: 064
  5. AMPICILLIN [Concomitant]
     Active Substance: AMPICILLIN
     Indication: Prophylaxis
     Dosage: UNK
     Route: 064

REACTIONS (3)
  - Vitamin K deficiency [Unknown]
  - Cerebellar haemorrhage [Unknown]
  - Hydrocephalus [Unknown]
